FAERS Safety Report 18136371 (Version 3)
Quarter: 2020Q4

REPORT INFORMATION
  Report Type: Report from Study
  Country: US (occurrence: US)
  Receive Date: 20200811
  Receipt Date: 20201106
  Transmission Date: 20210113
  Serious: Yes (Hospitalization, Other)
  Sender: FDA-Public Use
  Company Number: US-GILEAD-2018-0344919

PATIENT
  Age: 70 Year
  Sex: Male
  Weight: 53.5 kg

DRUGS (86)
  1. MESNA. [Suspect]
     Active Substance: MESNA
     Dosage: 2207 MG, ONCE
     Route: 042
     Dates: start: 20180808, end: 20180808
  2. DEXAMETHASONE. [Concomitant]
     Active Substance: DEXAMETHASONE
     Dosage: 10 MG, Q8H
     Dates: start: 20180824, end: 20180827
  3. BENADRYL [Concomitant]
     Active Substance: DIPHENHYDRAMINE HYDROCHLORIDE
  4. LEVOFLOXACIN. [Concomitant]
     Active Substance: LEVOFLOXACIN
  5. CEFAZOLINE [Concomitant]
     Active Substance: CEFAZOLIN SODIUM
  6. LIDOCAINE. [Concomitant]
     Active Substance: LIDOCAINE
  7. VITAMIN D3 [Concomitant]
     Active Substance: CHOLECALCIFEROL
  8. HEXAVITAMIN                        /00067501/ [Concomitant]
  9. LOMOTIL [Concomitant]
     Active Substance: ATROPINE SULFATE\DIPHENOXYLATE HYDROCHLORIDE
  10. MAGNESIUM OXIDE. [Concomitant]
     Active Substance: MAGNESIUM OXIDE
  11. CALCIUM CHLORIDE. [Concomitant]
     Active Substance: CALCIUM CHLORIDE
  12. LACTATED RINGERS SOLUTION [Concomitant]
     Active Substance: CALCIUM CHLORIDE\POTASSIUM CHLORIDE\SODIUM CHLORIDE\SODIUM LACTATE
  13. CEFTRIAXONE. [Concomitant]
     Active Substance: CEFTRIAXONE
  14. KTE-X19 [Suspect]
     Active Substance: AXICABTAGENE CILOLEUCEL
     Indication: ACUTE LYMPHOCYTIC LEUKAEMIA
     Dosage: 68 ML, ONCE
     Route: 042
     Dates: start: 20170623, end: 20170623
  15. CYCLOPHOSPHAMIDE. [Suspect]
     Active Substance: CYCLOPHOSPHAMIDE
     Indication: BONE MARROW CONDITIONING REGIMEN
     Dosage: 900 MG/M2, ONCE
     Route: 042
     Dates: start: 20170621, end: 20170621
  16. CYCLOPHOSPHAMIDE. [Suspect]
     Active Substance: CYCLOPHOSPHAMIDE
     Dosage: 900 MG/M2, ONCE
     Route: 042
     Dates: start: 20180808, end: 20180808
  17. VINCRISTINE [Concomitant]
     Active Substance: VINCRISTINE
     Indication: CHEMOTHERAPY
     Dosage: 2.25 MG/M2, ONCE
     Route: 042
     Dates: start: 20180727, end: 20180727
  18. METHOTREXATE. [Concomitant]
     Active Substance: METHOTREXATE
     Indication: PROPHYLAXIS
     Dosage: 12 MG, ONCE
     Route: 037
     Dates: start: 20180712, end: 20180712
  19. NYSTATIN. [Concomitant]
     Active Substance: NYSTATIN
  20. MIRALAX [Concomitant]
     Active Substance: POLYETHYLENE GLYCOL 3350
  21. COMPAZINE                          /00013302/ [Concomitant]
     Active Substance: PROCHLORPERAZINE EDISYLATE
     Indication: NAUSEA
     Dosage: 10 MG, PRN
     Dates: start: 20170630
  22. K-PHOS NEUTRAL [Concomitant]
     Active Substance: POTASSIUM PHOSPHATE\SODIUM PHOSPHATE
     Dosage: UNK
  23. CRESEMBA [Concomitant]
     Active Substance: ISAVUCONAZONIUM SULFATE
  24. VITAMIN K [Concomitant]
     Active Substance: PHYTONADIONE
  25. APIXABAN [Concomitant]
     Active Substance: APIXABAN
  26. VINCRISTINE [Concomitant]
     Active Substance: VINCRISTINE
     Indication: PRODUCT USED FOR UNKNOWN INDICATION
     Dosage: UNK
     Dates: start: 20170609, end: 20170609
  27. DEXAMETHASONE. [Concomitant]
     Active Substance: DEXAMETHASONE
     Dosage: 10 MG, Q6H
     Dates: start: 20180817, end: 20180824
  28. METHOTREXATE. [Concomitant]
     Active Substance: METHOTREXATE
     Indication: PRODUCT USED FOR UNKNOWN INDICATION
     Dosage: UNK
     Dates: start: 20170615, end: 20170615
  29. OXYCODONE [Concomitant]
     Active Substance: OXYCODONE
  30. SODIUM CHLORIDE. [Concomitant]
     Active Substance: SODIUM CHLORIDE
     Dosage: 4 L, UNK
     Dates: start: 20180816
  31. ACETAMINOPHEN. [Concomitant]
     Active Substance: ACETAMINOPHEN
     Indication: PYREXIA
     Dosage: UNK
  32. ACETAMINOPHEN. [Concomitant]
     Active Substance: ACETAMINOPHEN
     Indication: PAIN
     Dosage: 1000 MG
     Route: 042
     Dates: start: 20190413, end: 20190413
  33. DULCOLAX (BISACODYL) [Concomitant]
     Active Substance: BISACODYL
  34. MIRTAZAPINE. [Concomitant]
     Active Substance: MIRTAZAPINE
  35. PHENOL. [Concomitant]
     Active Substance: PHENOL
  36. MESNA. [Suspect]
     Active Substance: MESNA
     Indication: PROPHYLAXIS
     Dosage: UNK
     Route: 042
     Dates: start: 20170621, end: 20170621
  37. DEXAMETHASONE. [Concomitant]
     Active Substance: DEXAMETHASONE
     Dosage: 2 MG, QD
     Dates: start: 20180904, end: 20180906
  38. HEPARIN [Concomitant]
     Active Substance: HEPARIN SODIUM
  39. SENNOSIDES A+B [Concomitant]
     Active Substance: SENNOSIDES A AND B
  40. CALCIUM CARBONATE. [Concomitant]
     Active Substance: CALCIUM CARBONATE
  41. FENTANYL. [Concomitant]
     Active Substance: FENTANYL
  42. ZYLOPRIM [Concomitant]
     Active Substance: ALLOPURINOL
  43. NORVASC [Concomitant]
     Active Substance: AMLODIPINE BESYLATE
  44. BACTRIM DS [Concomitant]
     Active Substance: SULFAMETHOXAZOLE\TRIMETHOPRIM
  45. ZINC OXIDE. [Concomitant]
     Active Substance: ZINC OXIDE
  46. GABAPENTIN. [Concomitant]
     Active Substance: GABAPENTIN
  47. ALBUMIN [Concomitant]
     Active Substance: ALBUMIN HUMAN
  48. DEXAMETHASONE. [Concomitant]
     Active Substance: DEXAMETHASONE
     Dosage: 8 MG, BID
     Dates: start: 20180827, end: 20180829
  49. ACYCLOVIR                          /00587301/ [Concomitant]
     Active Substance: ACYCLOVIR
  50. ANTICOAGULANT CITRATE DEXTROSE SOLUTION (ACD) NOS [Concomitant]
     Active Substance: CITRIC ACID MONOHYDRATE\DEXTROSE\SODIUM CITRATE
  51. MELATONIN [Concomitant]
     Active Substance: MELATONIN
     Dosage: UNK
  52. IMODIUM [Concomitant]
     Active Substance: LOPERAMIDE HYDROCHLORIDE
  53. ZYPREXA [Concomitant]
     Active Substance: OLANZAPINE
  54. BACITRACIN. [Concomitant]
     Active Substance: BACITRACIN
  55. FLONASE [Concomitant]
     Active Substance: FLUTICASONE PROPIONATE
  56. CHLORPROMAZINE. [Concomitant]
     Active Substance: CHLORPROMAZINE
  57. POTASSIUM CHLORIDE. [Concomitant]
     Active Substance: POTASSIUM CHLORIDE
  58. FLUDARABINE [Suspect]
     Active Substance: FLUDARABINE PHOSPHATE
     Indication: BONE MARROW CONDITIONING REGIMEN
     Dosage: 25 MG/M2, QD
     Route: 042
     Dates: start: 20170619, end: 20170621
  59. DEXAMETHASONE. [Concomitant]
     Active Substance: DEXAMETHASONE
     Dosage: 4 MG, QD
     Dates: start: 20180901, end: 20180903
  60. PANTOPRAZOLE [Concomitant]
     Active Substance: PANTOPRAZOLE
  61. SCOPOLAMINE                        /00008701/ [Concomitant]
     Active Substance: SCOPOLAMINE
  62. POSACONAZOLE [Concomitant]
     Active Substance: POSACONAZOLE
  63. CALCIUM GLUCONATE. [Concomitant]
     Active Substance: CALCIUM GLUCONATE
  64. INSULIN [Concomitant]
     Active Substance: INSULIN NOS
  65. CEPHALEXIN [CEFALEXIN] [Concomitant]
     Active Substance: CEPHALEXIN
  66. MAGNESIUM SULFATE. [Concomitant]
     Active Substance: MAGNESIUM SULFATE
  67. LORAZEPAM. [Concomitant]
     Active Substance: LORAZEPAM
  68. DILAUDID [Concomitant]
     Active Substance: HYDROMORPHONE HYDROCHLORIDE
  69. ONDANSETRON [Concomitant]
     Active Substance: ONDANSETRON
  70. FOSAPREPITANT [Concomitant]
     Active Substance: FOSAPREPITANT
  71. SODIUM CITRATE. [Concomitant]
     Active Substance: SODIUM CITRATE
  72. VERSED [Concomitant]
     Active Substance: MIDAZOLAM HYDROCHLORIDE
  73. PEPCID [Concomitant]
     Active Substance: FAMOTIDINE
  74. CLARITIN [Concomitant]
     Active Substance: LORATADINE
  75. ZARXIO [Concomitant]
     Active Substance: FILGRASTIM-SNDZ
     Dosage: UNK
     Dates: start: 20180910
  76. IMMUNOGLOBULIN [IMMUNOGLOBULIN HUMAN NORMAL] [Concomitant]
     Active Substance: HUMAN IMMUNOGLOBULIN G
     Dosage: UNK
     Dates: start: 20191031
  77. POTASSIUM PHOSPHATE [POTASSIUM PHOSPHATE DIBASIC] [Concomitant]
  78. MARINOL [Concomitant]
     Active Substance: DRONABINOL
  79. SINGULAIR [Concomitant]
     Active Substance: MONTELUKAST SODIUM
  80. KTE-X19 [Suspect]
     Active Substance: AXICABTAGENE CILOLEUCEL
     Dosage: 68 ML, ONCE
     Route: 042
     Dates: start: 20180810, end: 20180810
  81. FLUDARABINE [Suspect]
     Active Substance: FLUDARABINE PHOSPHATE
     Dosage: 25 MG/M2, QD
     Route: 042
     Dates: start: 20180806, end: 20180808
  82. DEXAMETHASONE. [Concomitant]
     Active Substance: DEXAMETHASONE
     Dosage: UNK
     Dates: start: 20170609, end: 20170612
  83. DEXAMETHASONE. [Concomitant]
     Active Substance: DEXAMETHASONE
     Dosage: 4 MG, BID
     Dates: start: 20180829, end: 20180831
  84. DOCUSATE [Concomitant]
     Active Substance: DOCUSATE
  85. MILK OF MAGNESIA [Concomitant]
     Active Substance: MAGNESIUM HYDROXIDE
  86. ATOVAQUONE. [Concomitant]
     Active Substance: ATOVAQUONE

REACTIONS (17)
  - Diverticulitis [Recovered/Resolved]
  - Diarrhoea [Recovered/Resolved]
  - Fall [Recovered/Resolved]
  - Muscular weakness [Recovered/Resolved with Sequelae]
  - Pyrexia [Recovered/Resolved]
  - Hypoalbuminaemia [Recovered/Resolved]
  - Herpes zoster meningitis [Recovered/Resolved]
  - Systemic candida [Recovered/Resolved]
  - Nausea [Recovered/Resolved]
  - Sinus tachycardia [Recovered/Resolved]
  - Disseminated intravascular coagulation [Recovered/Resolved]
  - Encephalopathy [Recovered/Resolved]
  - Cytokine release syndrome [Recovered/Resolved]
  - Hypotension [Recovered/Resolved]
  - Confusional state [Recovered/Resolved]
  - Delirium [Recovered/Resolved]
  - Staphylococcal bacteraemia [Recovered/Resolved]

NARRATIVE: CASE EVENT DATE: 20180806
